FAERS Safety Report 6812828-9 (Version None)
Quarter: 2010Q3

REPORT INFORMATION
  Report Type: 
  Country: None (occurrence: None)
  Receive Date: 20100701
  Receipt Date: 20100623
  Transmission Date: 20110219
  Serious: Yes (Hospitalization)
  Sender: FDA-Public Use
  Company Number: US-ROCHE-711997

PATIENT
  Sex: Female
  Weight: 69.9 kg

DRUGS (4)
  1. CYTOVENE [Suspect]
     Indication: PRODUCT USED FOR UNKNOWN INDICATION
     Dosage: FREQUENCY: AFTER EACH DIALYSIS TREATMENT FOR 7 DAYS A WEEK.
     Route: 042
     Dates: start: 20100301
  2. PREDNISONE TAB [Concomitant]
  3. BACTRIM [Concomitant]
  4. ITRACONAZOLE [Concomitant]
     Dosage: DRUG NAME: INTRACONAZOLE.

REACTIONS (2)
  - PLATELET COUNT DECREASED [None]
  - PLATELET COUNT INCREASED [None]
